FAERS Safety Report 7186354-4 (Version None)
Quarter: 2010Q4

REPORT INFORMATION
  Report Type: 
  Country: None (occurrence: None)
  Receive Date: 20101222
  Receipt Date: 20101217
  Transmission Date: 20110411
  Serious: Yes (Death, Hospitalization)
  Sender: FDA-Public Use
  Company Number: FR-CEPHALON-2010002234

PATIENT
  Sex: Male

DRUGS (3)
  1. TREANDA [Suspect]
     Indication: MULTIPLE MYELOMA
     Route: 042
     Dates: start: 20081203, end: 20090204
  2. TREANDA [Suspect]
     Route: 042
     Dates: start: 20090303, end: 20090304
  3. TREANDA [Suspect]
     Route: 042
     Dates: start: 20090401, end: 20090402

REACTIONS (13)
  - ACUTE RESPIRATORY FAILURE [None]
  - ANAEMIA [None]
  - BRONCHITIS [None]
  - COUGH [None]
  - ESCHERICHIA INFECTION [None]
  - FEBRILE NEUTROPENIA [None]
  - GASTROINTESTINAL TOXICITY [None]
  - NEUTROPENIA [None]
  - PYREXIA [None]
  - RALES [None]
  - RENAL FAILURE [None]
  - THROMBOCYTOPENIA [None]
  - VOMITING [None]
